FAERS Safety Report 16976395 (Version 3)
Quarter: 2019Q4

REPORT INFORMATION
  Report Type: Spontaneous
  Country: JP (occurrence: JP)
  Receive Date: 20191030
  Receipt Date: 20191204
  Transmission Date: 20200122
  Serious: Yes (Death)
  Sender: FDA-Public Use
  Company Number: JP-JNJFOC-20191034658

PATIENT
  Age: 19 Year
  Sex: Male
  Weight: 52.2 kg

DRUGS (3)
  1. SODIUM VALPROATE [Suspect]
     Active Substance: VALPROATE SODIUM
     Indication: PRODUCT USED FOR UNKNOWN INDICATION
     Dosage: PERORAL MEDICINE
     Route: 048
  2. XEPLION [Suspect]
     Active Substance: PALIPERIDONE PALMITATE
     Indication: PRODUCT USED FOR UNKNOWN INDICATION
     Route: 030
     Dates: start: 20190723, end: 20190723
  3. XEPLION [Suspect]
     Active Substance: PALIPERIDONE PALMITATE
     Route: 030
     Dates: start: 20190730, end: 20190730

REACTIONS (1)
  - Death [Fatal]
